FAERS Safety Report 4530115-9 (Version None)
Quarter: 2004Q4

REPORT INFORMATION
  Report Type: 
  Country: None (occurrence: None)
  Receive Date: 20041217
  Receipt Date: 20041011
  Transmission Date: 20050328
  Serious: Yes (Hospitalization)
  Sender: FDA-Public Use
  Company Number: FR-ABBOTT-04P-056-0276866-00

PATIENT
  Age: 90 Year
  Sex: Female
  Weight: 60 kg

DRUGS (12)
  1. LIPANTHYL [Suspect]
     Indication: DYSLIPIDAEMIA
     Route: 048
     Dates: end: 20040807
  2. HESPERIDIN METHYL CHALCONE [Concomitant]
     Indication: DRUG USE FOR UNKNOWN INDICATION
     Dates: start: 20030801, end: 20040807
  3. TRIMETAZIDINE HYDROCHLORIDE [Concomitant]
     Indication: DRUG USE FOR UNKNOWN INDICATION
     Dates: start: 19840101
  4. ZALDIAR [Concomitant]
     Indication: DRUG USE FOR UNKNOWN INDICATION
     Dates: start: 20030801, end: 20040807
  5. DOMPERIDONE [Concomitant]
     Indication: DIARRHOEA
  6. MACROGOL [Concomitant]
     Indication: CONSTIPATION
  7. NORMACOL [Concomitant]
     Indication: CONSTIPATION
  8. OTHER ANTIDIARRHOEALS [Concomitant]
     Indication: DIARRHOEA
  9. PANFLUREX [Concomitant]
     Indication: DIARRHOEA
  10. TRIMEBUTINE MALEATE [Concomitant]
     Indication: DRUG USE FOR UNKNOWN INDICATION
     Dates: start: 20040909
  11. APOREX [Concomitant]
     Indication: DRUG USE FOR UNKNOWN INDICATION
     Dates: start: 20040909
  12. RENUTRYL 500 [Concomitant]
     Indication: DRUG USE FOR UNKNOWN INDICATION
     Dates: start: 20040909

REACTIONS (15)
  - ABDOMINAL DISTENSION [None]
  - ABDOMINAL PAIN [None]
  - AORTIC DILATATION [None]
  - BOWEL SOUNDS ABNORMAL [None]
  - CLUMSINESS [None]
  - CONSTIPATION [None]
  - DIARRHOEA [None]
  - FAECALOMA [None]
  - FALL [None]
  - FLATULENCE [None]
  - HAEMORRHOIDS [None]
  - INTERVERTEBRAL DISC CALCIFICATION [None]
  - SPINAL COMPRESSION FRACTURE [None]
  - SUBILEUS [None]
  - X-RAY GASTROINTESTINAL TRACT ABNORMAL [None]
